FAERS Safety Report 24691075 (Version 1)
Quarter: 2024Q4

REPORT INFORMATION
  Report Type: Report from Study
  Country: CA (occurrence: CA)
  Receive Date: 20241203
  Receipt Date: 20241203
  Transmission Date: 20250114
  Serious: Yes (Hospitalization, Other)
  Sender: TAKEDA
  Company Number: CA-TAKEDA-2024TUS118451

PATIENT
  Sex: Male

DRUGS (3)
  1. VEDOLIZUMAB [Suspect]
     Active Substance: VEDOLIZUMAB
     Indication: Colitis ulcerative
     Dosage: 300 MILLIGRAM
  2. PREDNISONE [Concomitant]
     Active Substance: PREDNISONE
     Dosage: 5 MILLIGRAM
  3. MESALAMINE [Concomitant]
     Active Substance: MESALAMINE
     Dosage: 1.2 MILLIGRAM

REACTIONS (5)
  - Cellulitis [Unknown]
  - External ear cellulitis [Unknown]
  - Sepsis [Unknown]
  - Ear infection [Unknown]
  - Ear swelling [Unknown]
